FAERS Safety Report 17180812 (Version 2)
Quarter: 2020Q4

REPORT INFORMATION
  Report Type: Report from Study
  Country: US (occurrence: US)
  Receive Date: 20191219
  Receipt Date: 20201027
  Transmission Date: 20210113
  Serious: Yes (Hospitalization)
  Sender: FDA-Public Use
  Company Number: NVSC2019US022055

PATIENT
  Age: 12 Year
  Sex: Male

DRUGS (5)
  1. MERCAPTOPURINE. [Suspect]
     Active Substance: MERCAPTOPURINE
     Indication: B PRECURSOR TYPE ACUTE LEUKAEMIA
     Dosage: DOSE VARIES BY DAY, QD
     Route: 048
     Dates: start: 20170202, end: 20191019
  2. INC424A [Suspect]
     Active Substance: RUXOLITINIB
     Indication: B PRECURSOR TYPE ACUTE LEUKAEMIA
     Dosage: 30 MG BID
     Route: 048
     Dates: start: 20170202
  3. METHOTREXATE. [Suspect]
     Active Substance: METHOTREXATE
     Indication: B PRECURSOR TYPE ACUTE LEUKAEMIA
     Dosage: 15 MILLIGRAM, ONCE PER MAINTENANCE CYCLE
     Route: 037
     Dates: start: 20170202, end: 20190715
  4. VINCRISTINE [Suspect]
     Active Substance: VINCRISTINE
     Indication: B PRECURSOR TYPE ACUTE LEUKAEMIA
     Dosage: VARYING DOSE, MONTHLY
     Route: 042
     Dates: start: 20170216, end: 20191007
  5. PREDNISONE. [Suspect]
     Active Substance: PREDNISONE
     Indication: B PRECURSOR TYPE ACUTE LEUKAEMIA
     Dosage: 30 MILLIGRAM, QD (FOR 5 DAYS EACH PHASE)
     Route: 048
     Dates: start: 20180521, end: 20190914

REACTIONS (1)
  - Pneumonia [Recovered/Resolved]

NARRATIVE: CASE EVENT DATE: 20191019
